FAERS Safety Report 5736587-6 (Version None)
Quarter: 2008Q2

REPORT INFORMATION
  Report Type: 
  Country: None (occurrence: None)
  Receive Date: 20080513
  Receipt Date: 20080430
  Transmission Date: 20081010
  Serious: Yes (Other)
  Sender: FDA-Public Use
  Company Number: JP-ASTRAZENECA-2008AP01880

PATIENT
  Sex: Male
  Weight: 81 kg

DRUGS (6)
  1. NAROPIN [Suspect]
     Indication: EPIDURAL ANAESTHESIA
     Dosage: 3-4 ML/HR DIV, PCA (2 ML)
     Route: 008
     Dates: start: 20080304, end: 20080306
  2. FENTANYL [Concomitant]
     Route: 008
     Dates: start: 20080304, end: 20080306
  3. DROLEPTAN [Concomitant]
     Route: 008
     Dates: start: 20080304, end: 20080306
  4. VOLTAREN [Concomitant]
     Route: 054
     Dates: start: 20080304, end: 20080307
  5. RASENAZOLIN [Concomitant]
     Route: 042
     Dates: start: 20080304, end: 20080307
  6. PENTAZOCINE LACTATE [Concomitant]
     Route: 030
     Dates: start: 20080304, end: 20080310

REACTIONS (3)
  - MUSCLE SPASMS [None]
  - MUSCULAR WEAKNESS [None]
  - OCULAR DYSMETRIA [None]
